FAERS Safety Report 13098558 (Version 1)
Quarter: 2017Q1

REPORT INFORMATION
  Report Type: Spontaneous
  Country: US (occurrence: US)
  Receive Date: 20170109
  Receipt Date: 20170109
  Transmission Date: 20170428
  Serious: Yes (Other)
  Sender: FDA-Public Use
  Company Number: US-ELI_LILLY_AND_COMPANY-US201701000569

PATIENT
  Sex: Male

DRUGS (2)
  1. FORTESTA [Suspect]
     Active Substance: TESTOSTERONE
     Indication: ANDROGEN REPLACEMENT THERAPY
     Dosage: UNK UNK, UNKNOWN
     Route: 065
     Dates: start: 2013, end: 201401
  2. AXIRON [Suspect]
     Active Substance: TESTOSTERONE
     Indication: ANDROGEN REPLACEMENT THERAPY
     Dosage: UNK UNK, UNKNOWN
     Route: 065
     Dates: start: 2013, end: 201401

REACTIONS (1)
  - Myocardial ischaemia [Unknown]

NARRATIVE: CASE EVENT DATE: 20140102
